FAERS Safety Report 9965461 (Version 2)
Quarter: 2014Q2

REPORT INFORMATION
  Report Type: Report from Study
  Country: AU (occurrence: AU)
  Receive Date: 20140305
  Receipt Date: 20140530
  Transmission Date: 20141212
  Serious: Yes (Hospitalization, Other)
  Sender: FDA-Public Use
  Company Number: PHHY2014AU027245

PATIENT
  Age: 40 Year
  Sex: Female
  Weight: 78.3 kg

DRUGS (4)
  1. CLOZARIL [Suspect]
     Indication: SCHIZOPHRENIA
     Dosage: 600 MG, UNK
     Route: 048
     Dates: start: 20010702
  2. CLOPIXOL [Concomitant]
     Indication: SCHIZOPHRENIA
     Dosage: 200 MG, 2/52
     Route: 030
  3. QUETIAPINE [Concomitant]
     Dosage: 100 MG, QD
     Route: 048
  4. FLUOXETINE [Concomitant]
     Indication: DEPRESSION
     Dosage: 200 MG, QD
     Route: 048
     Dates: start: 20140228

REACTIONS (2)
  - Breast cancer [Not Recovered/Not Resolved]
  - Breast mass [Unknown]
